FAERS Safety Report 10941802 (Version 2)
Quarter: 2015Q2

REPORT INFORMATION
  Report Type: Spontaneous
  Country: US (occurrence: US)
  Receive Date: 20150322
  Receipt Date: 20150524
  Transmission Date: 20150821
  Serious: Yes (Other)
  Sender: FDA-Public Use
  Company Number: US-JNJFOC-20131111961

PATIENT
  Sex: Female
  Weight: 90.72 kg

DRUGS (4)
  1. INVOKANA [Suspect]
     Active Substance: CANAGLIFLOZIN
     Indication: DIABETES MELLITUS
     Route: 048
     Dates: start: 201309
  2. TOPROL XL [Concomitant]
     Active Substance: METOPROLOL SUCCINATE
     Indication: MIGRAINE
     Route: 048
     Dates: start: 1993
  3. ESTRATEST HS [Concomitant]
     Active Substance: ESTROGENS, ESTERIFIED\METHYLTESTOSTERONE
     Indication: MENOPAUSE
     Dates: start: 1993
  4. IMITREX [Concomitant]
     Active Substance: SUMATRIPTAN\SUMATRIPTAN SUCCINATE
     Dates: start: 1993

REACTIONS (2)
  - Urticaria [Recovered/Resolved]
  - Erythema [Recovered/Resolved]
